FAERS Safety Report 13912091 (Version 1)
Quarter: 2017Q3

REPORT INFORMATION
  Report Type: Spontaneous
  Country: US (occurrence: US)
  Receive Date: 20170828
  Receipt Date: 20170828
  Transmission Date: 20171127
  Serious: No
  Sender: FDA-Public Use
  Company Number: US-ROCHE-GNE301590

PATIENT
  Age: 14 Year
  Sex: Female

DRUGS (1)
  1. NUTROPIN AQ [Suspect]
     Active Substance: SOMATROPIN
     Indication: GROWTH HORMONE DEFICIENCY
     Dosage: UNK
     Route: 065
     Dates: start: 20100417

REACTIONS (5)
  - Pyrexia [Not Recovered/Not Resolved]
  - Dizziness [None]
  - Joint swelling [None]
  - Nausea [None]
  - Headache [None]

NARRATIVE: CASE EVENT DATE: 201004
